FAERS Safety Report 4581197-X (Version None)
Quarter: 2005Q1

REPORT INFORMATION
  Report Type: 
  Country: None (occurrence: None)
  Receive Date: 20050214
  Receipt Date: 20040827
  Transmission Date: 20050727
  Serious: No
  Sender: FDA-Public Use
  Company Number: US-GLAXOSMITHKLINE-A0523807A

PATIENT
  Age: 27 Year
  Sex: Male

DRUGS (4)
  1. LAMICTAL [Suspect]
     Indication: BIPOLAR DISORDER
     Dosage: 50MG AT NIGHT
     Route: 048
     Dates: start: 20040701
  2. CLOZAPINE [Concomitant]
  3. COGENTIN [Concomitant]
  4. WELLBUTRIN [Concomitant]

REACTIONS (2)
  - DIZZINESS [None]
  - LETHARGY [None]
